FAERS Safety Report 20835013 (Version 4)
Quarter: 2023Q1

REPORT INFORMATION
  Report Type: Spontaneous
  Country: US (occurrence: US)
  Receive Date: 20220516
  Receipt Date: 20230227
  Transmission Date: 20230418
  Serious: No
  Sender: FDA-Public Use
  Company Number: US-PFIZER INC-202200654964

PATIENT
  Age: 63 Year
  Sex: Female

DRUGS (1)
  1. PREMPRO [Suspect]
     Active Substance: ESTROGENS, CONJUGATED\MEDROXYPROGESTERONE ACETATE
     Dosage: UNK

REACTIONS (5)
  - Illness [Unknown]
  - Disturbance in attention [Unknown]
  - Thinking abnormal [Unknown]
  - Malaise [Not Recovered/Not Resolved]
  - Gallbladder disorder [Not Recovered/Not Resolved]
